FAERS Safety Report 9678374 (Version 1)
Quarter: 2013Q4

REPORT INFORMATION
  Report Type: Spontaneous
  Country: GB (occurrence: GB)
  Receive Date: 20131108
  Receipt Date: 20131108
  Transmission Date: 20140711
  Serious: Yes (Death)
  Sender: FDA-Public Use
  Company Number: GB-ASTRAZENECA-2013SE81158

PATIENT
  Age: 60 Year
  Sex: Male

DRUGS (2)
  1. CAPRELSA [Suspect]
     Route: 048
     Dates: start: 201305
  2. CAPRELSA [Suspect]
     Route: 048
     Dates: start: 201306

REACTIONS (1)
  - Death [Fatal]
